FAERS Safety Report 9805484 (Version 2)
Quarter: 2014Q1

REPORT INFORMATION
  Report Type: Spontaneous
  Country: US (occurrence: US)
  Receive Date: 20140109
  Receipt Date: 20140210
  Transmission Date: 20141002
  Serious: No
  Sender: FDA-Public Use
  Company Number: US-009507513-1401USA002557

PATIENT
  Sex: Female
  Weight: 90.7 kg

DRUGS (8)
  1. MIRALAX [Suspect]
     Indication: RECTOCELE
     Dosage: 17 G, QOD
     Route: 048
     Dates: start: 20101108, end: 20131203
  2. BENEFIBER [Concomitant]
     Indication: PRODUCT USED FOR UNKNOWN INDICATION
     Dosage: UNK, QD
  3. NORVASC [Concomitant]
     Indication: BLOOD PRESSURE
     Dosage: UNK, UNKNOWN
  4. CARVEDILOL [Concomitant]
     Indication: CARDIAC MURMUR
     Dosage: UNK, UNKNOWN
  5. NAPROXEN [Concomitant]
     Indication: BACK DISORDER
     Dosage: UNK, UNKNOWN
  6. PREVACID [Concomitant]
     Indication: DYSPEPSIA
     Dosage: UNK, UNKNOWN
  7. PROBIOTICS (UNSPECIFIED) [Concomitant]
     Indication: DYSPEPSIA
     Dosage: UNK, UNKNOWN
  8. PRILOSEC [Concomitant]
     Indication: DYSPEPSIA
     Dosage: UNK, UNKNOWN

REACTIONS (3)
  - Fungal infection [Not Recovered/Not Resolved]
  - Inappropriate schedule of drug administration [Unknown]
  - Off label use [Unknown]
